FAERS Safety Report 10061486 (Version 1)
Quarter: 2014Q2

REPORT INFORMATION
  Report Type: Spontaneous
  Country: US (occurrence: US)
  Receive Date: 20140407
  Receipt Date: 20140407
  Transmission Date: 20141212
  Serious: No
  Sender: FDA-Public Use
  Company Number: US-BAYER-2014-051368

PATIENT
  Age: 56 Year
  Sex: Male

DRUGS (2)
  1. GADAVIST [Suspect]
     Indication: NUCLEAR MAGNETIC RESONANCE IMAGING
     Dosage: UNK UNK, ONCE
     Dates: start: 20140403, end: 20140403
  2. GADAVIST [Suspect]
     Indication: SPINAL PAIN

REACTIONS (3)
  - Nausea [None]
  - Vomiting [None]
  - Dyspnoea [None]
